FAERS Safety Report 8384067-4 (Version None)
Quarter: 2012Q2

REPORT INFORMATION
  Report Type: 
  Country: None (occurrence: None)
  Receive Date: 20120524
  Receipt Date: 20120517
  Transmission Date: 20120825
  Serious: Yes (Hospitalization)
  Sender: FDA-Public Use
  Company Number: CHNY2012JP000562

PATIENT
  Age: 77 Year
  Sex: Male

DRUGS (4)
  1. PERIACTIN [Concomitant]
  2. ENALAPRIL MALEATE [Suspect]
     Route: 048
  3. PURSENNID [Suspect]
     Route: 048
  4. CYPROHEPTADINE HYDROCHLORIDE [Concomitant]
     Route: 048

REACTIONS (3)
  - MACULE [None]
  - LYMPHOCYTE STIMULATION TEST POSITIVE [None]
  - PURPURA [None]
